FAERS Safety Report 26174237 (Version 1)
Quarter: 2025Q4

REPORT INFORMATION
  Report Type: Spontaneous
  Country: AU (occurrence: AU)
  Receive Date: 20251218
  Receipt Date: 20251218
  Transmission Date: 20260117
  Serious: Yes (Life-Threatening, Hospitalization, Other)
  Sender: STRIDES
  Company Number: AU-STRIDES ARCOLAB LIMITED-2025SP015725

PATIENT
  Age: 55 Year
  Sex: Male

DRUGS (5)
  1. AMLODIPINE [Suspect]
     Active Substance: AMLODIPINE BESYLATE
     Indication: Hypertension
     Dosage: UNK
     Route: 065
  2. HYDRALAZINE HYDROCHLORIDE [Suspect]
     Active Substance: HYDRALAZINE HYDROCHLORIDE
     Indication: Hypertension
     Dosage: 3200 MILLIGRAM
     Route: 048
  3. PERINDOPRIL [Suspect]
     Active Substance: PERINDOPRIL
     Indication: Hypertension
     Dosage: UNK
     Route: 065
  4. DROPERIDOL [Suspect]
     Active Substance: DROPERIDOL
     Indication: Behaviour disorder
     Dosage: 20 MILLIGRAM
     Route: 030
  5. KETAMINE [Concomitant]
     Active Substance: KETAMINE
     Indication: Behaviour disorder
     Dosage: 200 MILLIGRAM
     Route: 042

REACTIONS (7)
  - Distributive shock [Recovering/Resolving]
  - Acute kidney injury [Recovering/Resolving]
  - Metabolic acidosis [Recovering/Resolving]
  - Suicide attempt [Unknown]
  - Hypotension [Recovering/Resolving]
  - Intentional overdose [Unknown]
  - Toxicity to various agents [Unknown]
